FAERS Safety Report 5309381-8 (Version None)
Quarter: 2007Q2

REPORT INFORMATION
  Report Type: 
  Country: None (occurrence: None)
  Receive Date: 20070423
  Receipt Date: 20070412
  Transmission Date: 20071010
  Serious: Yes (Hospitalization, Other)
  Sender: FDA-Public Use
  Company Number: 100#08#2007-01153

PATIENT
  Age: 7 Week
  Sex: Female

DRUGS (4)
  1. AZITHROMYCIN [Suspect]
     Indication: PERTUSSIS
     Dosage: 10 MG/KG ONCE DAILY UNKNOWN
  2. METOCLOPRAMIDE (METOCLOPRAMIDE) (METOCLOPRAMIDE) [Concomitant]
  3. RANITIDINE (RANITIDINE) (RANITIDINE) [Concomitant]
  4. IRON (IRON) (IRON) [Concomitant]

REACTIONS (3)
  - GASTROOESOPHAGEAL REFLUX DISEASE [None]
  - PYLORIC STENOSIS [None]
  - WEIGHT GAIN POOR [None]
